FAERS Safety Report 4590497-9 (Version None)
Quarter: 2005Q1

REPORT INFORMATION
  Report Type: 
  Country: None (occurrence: None)
  Receive Date: 20050217
  Receipt Date: 20050202
  Transmission Date: 20050727
  Serious: Yes (Hospitalization)
  Sender: FDA-Public Use
  Company Number: EM2004-0649

PATIENT
  Age: 65 Year
  Sex: Male

DRUGS (4)
  1. PROLEUKIN [Suspect]
     Indication: RENAL CELL CARCINOMA STAGE UNSPECIFIED
     Dosage: 55, Q8H, IV
     Route: 042
     Dates: start: 20040809, end: 20040810
  2. ANTABUSE [Concomitant]
  3. LEVAQUIN [Concomitant]
  4. ZOLOFT [Concomitant]

REACTIONS (23)
  - ABDOMINAL PAIN UPPER [None]
  - APHASIA [None]
  - ASTHENIA [None]
  - BRAIN OEDEMA [None]
  - CARDIAC TAMPONADE [None]
  - CEREBRAL ATROPHY [None]
  - CEREBRAL INFARCTION [None]
  - CEREBROVASCULAR ACCIDENT [None]
  - CHILLS [None]
  - DIASTOLIC DYSFUNCTION [None]
  - DRUG TOXICITY [None]
  - ENCEPHALOPATHY [None]
  - HYPOTENSION [None]
  - INFECTION [None]
  - METABOLIC DISORDER [None]
  - MYOCARDIAL INFARCTION [None]
  - PERICARDIAL EFFUSION [None]
  - PNEUMONIA [None]
  - PULMONARY HYPERTENSION [None]
  - THERAPY NON-RESPONDER [None]
  - URINARY INCONTINENCE [None]
  - VENTRICULAR EXTRASYSTOLES [None]
  - VENTRICULAR HYPERTROPHY [None]
